FAERS Safety Report 23858822 (Version 1)
Quarter: 2024Q2

REPORT INFORMATION
  Report Type: Spontaneous
  Country: CN (occurrence: CN)
  Receive Date: 20240515
  Receipt Date: 20240515
  Transmission Date: 20240715
  Serious: Yes (Other)
  Sender: FDA-Public Use
  Company Number: None

PATIENT
  Age: 69 Year
  Sex: Female
  Weight: 60.5 kg

DRUGS (6)
  1. CYCLOPHOSPHAMIDE [Suspect]
     Active Substance: CYCLOPHOSPHAMIDE
     Indication: Diffuse large B-cell lymphoma
     Dosage: 0.6 G (LYOPHILIZED FORMULATION), ONE TIME IN ONE DAY, DILUTED WITH 0.9% SODIUM CHLORIDE (UPRIGHT SOF
     Route: 042
     Dates: start: 20240411, end: 20240411
  2. SODIUM CHLORIDE [Suspect]
     Active Substance: SODIUM CHLORIDE
     Indication: Medication dilution
     Dosage: 0.9 % (UPRIGHT SOFT BAG), 50 ML, ONE TIME IN ONE DAY, USED TO DILUTE 0.6 G OF CYCLOPHOSPHAMIDE
     Route: 042
     Dates: start: 20240411, end: 20240411
  3. SODIUM CHLORIDE [Suspect]
     Active Substance: SODIUM CHLORIDE
     Dosage: 0.9 % (UPRIGHT SOFT BAG), 50 ML, ONE TIME IN ONE DAY, USED TO DILUTE EPIRUBICIN HYDROCHLORIDE 60 MG
     Route: 042
     Dates: start: 20240411, end: 20240411
  4. SODIUM CHLORIDE [Suspect]
     Active Substance: SODIUM CHLORIDE
     Dosage: 0.9 % (UPRIGHT SOFT BAG), 50 ML, ONE TIME IN ONE DAY, USED TO DILUTE 2 MG OF VINDESINE SULFATE
     Route: 042
     Dates: start: 20240411, end: 20240411
  5. EPIRUBICIN HYDROCHLORIDE [Suspect]
     Active Substance: EPIRUBICIN HYDROCHLORIDE
     Indication: Diffuse large B-cell lymphoma
     Dosage: 60 MG, ONE TIME IN ONE DAY, DILUTED WITH 0.9% SODIUM CHLORIDE (UPRIGHT SOFT BAG) 50 ML
     Route: 042
     Dates: start: 20240411, end: 20240411
  6. VINDESINE SULFATE [Suspect]
     Active Substance: VINDESINE SULFATE
     Indication: Diffuse large B-cell lymphoma
     Dosage: 2 MG, ONE TIME IN ONE DAY, DILUTED WITH 0.9% SODIUM CHLORIDE (UPRIGHT SOFT BAG) 50 ML
     Route: 042
     Dates: start: 20240411, end: 20240411

REACTIONS (1)
  - Myelosuppression [Unknown]

NARRATIVE: CASE EVENT DATE: 20240413
